APPROVED DRUG PRODUCT: BENZYL BENZOATE
Active Ingredient: BENZYL BENZOATE
Strength: 50%
Dosage Form/Route: EMULSION;TOPICAL
Application: A084535 | Product #001
Applicant: LANNETT CO INC
Approved: Approved Prior to Jan 1, 1982 | RLD: No | RS: No | Type: DISCN